FAERS Safety Report 5370396-5 (Version None)
Quarter: 2007Q2

REPORT INFORMATION
  Report Type: 
  Country: None (occurrence: None)
  Receive Date: 20070626
  Receipt Date: 20070105
  Transmission Date: 20071010
  Serious: No
  Sender: FDA-Public Use
  Company Number: US-AMGEN-KDL193673

PATIENT
  Sex: Male
  Weight: 79.5 kg

DRUGS (14)
  1. PROCRIT [Suspect]
     Indication: ANAEMIA OF MALIGNANT DISEASE
     Dates: start: 20060908
  2. ARANESP [Suspect]
  3. GLUCOTROL [Concomitant]
  4. NEURONTIN [Concomitant]
  5. ATARAX [Concomitant]
     Dates: start: 20060911
  6. PRAVACHOL [Concomitant]
  7. ASPIRIN [Concomitant]
  8. NEUPOGEN [Concomitant]
  9. LEUKINE [Concomitant]
  10. REGLAN [Concomitant]
  11. RITUXAN [Concomitant]
  12. FLUDARA [Concomitant]
  13. CYTOXAN [Concomitant]
  14. NEUMEGA [Concomitant]

REACTIONS (3)
  - ADVERSE DRUG REACTION [None]
  - RASH [None]
  - SLEEP DISORDER [None]
